FAERS Safety Report 4636280-7 (Version None)
Quarter: 2005Q2

REPORT INFORMATION
  Report Type: 
  Country: None (occurrence: None)
  Receive Date: 20050415
  Receipt Date: 20040519
  Transmission Date: 20051028
  Serious: No
  Sender: FDA-Public Use
  Company Number: US-BRISTOL-MYERS SQUIBB COMPANY-12591046

PATIENT
  Age: 58 Year
  Sex: Female
  Weight: 44 kg

DRUGS (5)
  1. CARBOPLATIN [Suspect]
     Indication: OVARIAN CANCER METASTATIC
     Route: 042
     Dates: start: 20040518, end: 20040518
  2. TAXOL [Concomitant]
     Indication: OVARIAN CANCER METASTATIC
     Route: 042
     Dates: start: 20040518, end: 20040518
  3. BENADRYL [Concomitant]
     Indication: PREMEDICATION
     Dates: start: 20040518, end: 20040518
  4. DECADRON [Concomitant]
     Indication: PREMEDICATION
     Dates: start: 20040518, end: 20040518
  5. PEPCID [Concomitant]
     Indication: PREMEDICATION
     Dates: start: 20040518, end: 20040518

REACTIONS (1)
  - DRUG HYPERSENSITIVITY [None]
